FAERS Safety Report 15946450 (Version 2)
Quarter: 2019Q1

REPORT INFORMATION
  Report Type: Spontaneous
  Country: FR (occurrence: FR)
  Receive Date: 20190211
  Receipt Date: 20190326
  Transmission Date: 20190417
  Serious: Yes (Hospitalization)
  Sender: FDA-Public Use
  Company Number: PHHY2019FR030037

PATIENT
  Age: 71 Year
  Sex: Male
  Weight: 102 kg

DRUGS (3)
  1. VECTIBIX [Suspect]
     Active Substance: PANITUMUMAB
     Indication: METASTATIC MALIGNANT MELANOMA
     Dosage: UNK (4 INJECTIONS)
     Route: 042
  2. MEKINIST [Suspect]
     Active Substance: TRAMETINIB DIMETHYL SULFOXIDE
     Indication: METASTATIC MALIGNANT MELANOMA
     Dosage: 2 MG, QD
     Route: 048
     Dates: start: 20180824, end: 20181203
  3. TAFINLAR [Suspect]
     Active Substance: DABRAFENIB MESYLATE
     Indication: METASTATIC MALIGNANT MELANOMA
     Dosage: 300 MG, QD
     Route: 048
     Dates: start: 20180824

REACTIONS (1)
  - Retinal detachment [Recovered/Resolved with Sequelae]

NARRATIVE: CASE EVENT DATE: 20181203
